FAERS Safety Report 12877223 (Version 7)
Quarter: 2017Q3

REPORT INFORMATION
  Report Type: Report from Study
  Country: JP (occurrence: JP)
  Receive Date: 20161024
  Receipt Date: 20170704
  Transmission Date: 20171127
  Serious: Yes (Death, Hospitalization)
  Sender: FDA-Public Use
  Company Number: PHJP2016JP029577

PATIENT
  Age: 50 Year
  Sex: Male

DRUGS (8)
  1. TAFINLAR [Suspect]
     Active Substance: DABRAFENIB MESYLATE
     Dosage: 200 MG, QD
     Route: 048
     Dates: start: 20160707, end: 20160707
  2. TAFINLAR [Suspect]
     Active Substance: DABRAFENIB MESYLATE
     Indication: MALIGNANT MELANOMA STAGE IV
     Dosage: 300 MG, QD
     Route: 048
     Dates: start: 20160607, end: 20160619
  3. MEKINIST [Suspect]
     Active Substance: TRAMETINIB DIMETHYL SULFOXIDE
     Dosage: 1.5 MG, QD
     Route: 048
     Dates: start: 20160712, end: 20161003
  4. TAFINLAR [Suspect]
     Active Substance: DABRAFENIB MESYLATE
     Dosage: 300 MG, QD
     Route: 048
     Dates: start: 20161004, end: 20161121
  5. MEKINIST [Suspect]
     Active Substance: TRAMETINIB DIMETHYL SULFOXIDE
     Indication: MALIGNANT MELANOMA STAGE IV
     Dosage: 2 MG, QD
     Route: 048
     Dates: start: 20160607, end: 20160619
  6. MEKINIST [Suspect]
     Active Substance: TRAMETINIB DIMETHYL SULFOXIDE
     Dosage: 2 MG, QD
     Route: 048
     Dates: start: 20161004, end: 20161121
  7. TAFINLAR [Suspect]
     Active Substance: DABRAFENIB MESYLATE
     Dosage: 150 MG, QD
     Route: 048
     Dates: start: 20160712, end: 20160822
  8. TAFINLAR [Suspect]
     Active Substance: DABRAFENIB MESYLATE
     Dosage: 200 MG, QD
     Route: 048
     Dates: start: 20160823, end: 20161003

REACTIONS (20)
  - Malignant melanoma stage IV [Fatal]
  - Back pain [Fatal]
  - Concomitant disease aggravated [Fatal]
  - Activated partial thromboplastin time prolonged [Recovered/Resolved]
  - Blood creatine phosphokinase increased [Recovered/Resolved]
  - Hepatic function abnormal [Recovering/Resolving]
  - Pyrexia [Recovering/Resolving]
  - Disseminated intravascular coagulation [Recovered/Resolved]
  - Coagulopathy [Recovered/Resolved]
  - Platelet count decreased [Recovered/Resolved]
  - Pyrexia [Fatal]
  - Malaise [Unknown]
  - Malignant neoplasm progression [Fatal]
  - Lymphocyte count abnormal [Recovered/Resolved]
  - Skin mass [Fatal]
  - Blood potassium increased [Recovered/Resolved]
  - Pancytopenia [Recovered/Resolved]
  - Dehydration [Recovering/Resolving]
  - Renal impairment [Recovering/Resolving]
  - Pyrexia [Recovered/Resolved]

NARRATIVE: CASE EVENT DATE: 20160619
